FAERS Safety Report 9332371 (Version 1)
Quarter: 2013Q2

REPORT INFORMATION
  Report Type: Spontaneous
  Country: US (occurrence: US)
  Receive Date: 20130606
  Receipt Date: 20130606
  Transmission Date: 20140414
  Serious: Yes (Hospitalization)
  Sender: FDA-Public Use
  Company Number: PHEH2013US012061

PATIENT
  Age: 36 Year
  Sex: Male

DRUGS (6)
  1. GILENYA [Suspect]
     Indication: MULTIPLE SCLEROSIS
     Dosage: 0.5 MG, QD
     Route: 048
     Dates: start: 20110801
  2. TIZANIDINE [Concomitant]
  3. SEROQUEL [Concomitant]
  4. EFFEXOR [Concomitant]
  5. OXYBUTYNIN [Concomitant]
  6. AMBIEN [Concomitant]

REACTIONS (1)
  - Grand mal convulsion [Not Recovered/Not Resolved]
